FAERS Safety Report 6497624-7 (Version None)
Quarter: 2009Q4

REPORT INFORMATION
  Report Type: 
  Country: None (occurrence: None)
  Receive Date: 20091215
  Receipt Date: 20091203
  Transmission Date: 20100525
  Serious: Yes (Hospitalization, Other)
  Sender: FDA-Public Use
  Company Number: US-ROCHE-640821

PATIENT
  Sex: Male
  Weight: 97.1 kg

DRUGS (10)
  1. PEGASYS [Suspect]
     Indication: HEPATITIS C
     Dosage: FORM: PRE-FILLED SYRINGE
     Route: 058
     Dates: start: 20090616, end: 20091022
  2. PEGASYS [Suspect]
     Route: 058
     Dates: start: 20091029, end: 20091030
  3. COPEGUS [Suspect]
     Indication: HEPATITIS C
     Dosage: FREQUENCY: 3 IN AM 2 IN PM
     Route: 048
     Dates: start: 20090616, end: 20091022
  4. COPEGUS [Suspect]
     Route: 048
     Dates: start: 20091029, end: 20091030
  5. ALINIA [Suspect]
     Indication: HEPATITIS C
     Route: 048
     Dates: start: 20090616, end: 20091022
  6. ALINIA [Suspect]
     Route: 048
     Dates: start: 20091029, end: 20091030
  7. TRUVADA [Concomitant]
  8. BENADRYL [Concomitant]
     Dosage: FREQUENCY: TID AS NECESSARY
     Route: 048
  9. NORCO [Concomitant]
     Dosage: DOSE: 7.5/325, FREQUENCY: BID AS NECESSARY
     Route: 048
  10. ATRIPLA [Concomitant]
     Dosage: DAILY
     Route: 048

REACTIONS (18)
  - BLOOD URINE PRESENT [None]
  - CHEST PAIN [None]
  - DECREASED APPETITE [None]
  - DEHYDRATION [None]
  - DIARRHOEA [None]
  - DYSPNOEA [None]
  - FATIGUE [None]
  - HEADACHE [None]
  - HYPERHIDROSIS [None]
  - INSOMNIA [None]
  - LIVER DISORDER [None]
  - LOSS OF CONSCIOUSNESS [None]
  - ORTHOSTATIC HYPOTENSION [None]
  - PANCYTOPENIA [None]
  - PRURITUS [None]
  - SLUGGISHNESS [None]
  - THERMOHYPERAESTHESIA [None]
  - WEIGHT DECREASED [None]
